FAERS Safety Report 17958575 (Version 1)
Quarter: 2020Q2

REPORT INFORMATION
  Report Type: Spontaneous
  Country: GB (occurrence: GB)
  Receive Date: 20200630
  Receipt Date: 20200630
  Transmission Date: 20200714
  Serious: Yes (Other)
  Sender: FDA-Public Use
  Company Number: GB-TEVA-2020-GB-1792211

PATIENT
  Age: 68 Year
  Sex: Male
  Weight: 92 kg

DRUGS (3)
  1. LEVOTHYROXINE. [Concomitant]
     Active Substance: LEVOTHYROXINE
  2. NAPROXEN. [Suspect]
     Active Substance: NAPROXEN
     Indication: PAIN IN EXTREMITY
     Dosage: 1000 MG
     Route: 048
     Dates: start: 20200522, end: 20200531
  3. OMEPRAZOLE. [Concomitant]
     Active Substance: OMEPRAZOLE

REACTIONS (4)
  - Urinary tract disorder [Not Recovered/Not Resolved]
  - Chromaturia [Recovered/Resolved]
  - Urine output decreased [Recovered/Resolved]
  - Penile discomfort [Not Recovered/Not Resolved]

NARRATIVE: CASE EVENT DATE: 20200526
